FAERS Safety Report 10007386 (Version 1)
Quarter: 2014Q1

REPORT INFORMATION
  Report Type: Spontaneous
  Country: US (occurrence: None)
  Receive Date: 20140312
  Receipt Date: 20140312
  Transmission Date: 20141002
  Serious: No
  Sender: FDA-Public Use
  Company Number: None

PATIENT
  Age: 80 Year
  Sex: Male
  Weight: 57.2 kg

DRUGS (18)
  1. BEVACIZUMAB(RHUMAB VEGF) [Suspect]
     Dosage: DOSED ON BASELINE WEIGHT
  2. CARBOPLATIN [Suspect]
     Dosage: DOSE ON THE CURRENT WEIGHT AND CREATINING FROM DATE OF TREATMENT
  3. TAXOL [Suspect]
     Dosage: DOSED ON BASELINE BSA
  4. ACETAMINOPHEN-CODEINE [Concomitant]
  5. ADVAIR [Concomitant]
  6. AMLODIPINE [Concomitant]
  7. ASPIRIN [Concomitant]
  8. FERROURS SULFATE [Concomitant]
  9. GUAIFENSEIN [Concomitant]
  10. METOPROLOL [Concomitant]
  11. MULTIVITAMIN [Concomitant]
  12. OMEPRAZOLE [Concomitant]
  13. PRASUGREL [Concomitant]
  14. PROCHLORPERAZINE [Concomitant]
  15. TRAMADOL [Concomitant]
  16. ATORVASTATIN [Concomitant]
  17. LATANOPROST [Concomitant]
  18. TIOTROPIUM [Concomitant]

REACTIONS (5)
  - Dyspnoea [None]
  - Cough [None]
  - Pleural effusion [None]
  - Pneumonia [None]
  - Anaemia [None]
